FAERS Safety Report 16925779 (Version 1)
Quarter: 2019Q4

REPORT INFORMATION
  Report Type: Spontaneous
  Country: US (occurrence: US)
  Receive Date: 20191016
  Receipt Date: 20191016
  Transmission Date: 20200122
  Serious: No
  Sender: FDA-Public Use
  Company Number: US-LEXICON PHARMACEUTICALS, INC-19-1606-00926

PATIENT
  Sex: Female

DRUGS (26)
  1. RANITIDINE. [Concomitant]
     Active Substance: RANITIDINE
  2. DICYCLOMINE [Concomitant]
     Active Substance: DICYCLOMINE HYDROCHLORIDE
  3. POTASSIUM CHLORIDE. [Concomitant]
     Active Substance: POTASSIUM CHLORIDE
  4. ZITHROMAX [Concomitant]
     Active Substance: AZITHROMYCIN DIHYDRATE
  5. TESSALON [Concomitant]
     Active Substance: BENZONATATE
  6. NEURONTIN [Concomitant]
     Active Substance: GABAPENTIN
  7. ZOLOFT [Concomitant]
     Active Substance: SERTRALINE HYDROCHLORIDE
  8. TELOTRISTAT ETHYL [Suspect]
     Active Substance: TELOTRISTAT ETHYL
     Indication: CARCINOID SYNDROME
     Route: 048
     Dates: start: 20190118
  9. PREDNISONE. [Concomitant]
     Active Substance: PREDNISONE
  10. PHENERGAN CODEINE [Concomitant]
  11. WELLBUTRIN [Concomitant]
     Active Substance: BUPROPION HYDROCHLORIDE
  12. CULTURELLE [Concomitant]
     Active Substance: LACTOBACILLUS RHAMNOSUS
  13. SINEMET [Concomitant]
     Active Substance: CARBIDOPA\LEVODOPA
  14. ZOFRAN [Concomitant]
     Active Substance: ONDANSETRON HYDROCHLORIDE
  15. OS-CAL 500-600 [Concomitant]
  16. SINGULAIR [Concomitant]
     Active Substance: MONTELUKAST SODIUM
  17. OXYCODONE [Concomitant]
     Active Substance: OXYCODONE
  18. ADVAIR HFA [Concomitant]
     Active Substance: FLUTICASONE PROPIONATE\SALMETEROL XINAFOATE
  19. TRAZODONE [Concomitant]
     Active Substance: TRAZODONE HYDROCHLORIDE
  20. BECLOMETHASONE DIPROPIONATE [Concomitant]
     Active Substance: BECLOMETHASONE DIPROPIONATE
  21. EVOXAC [Concomitant]
     Active Substance: CEVIMELINE HYDROCHLORIDE
  22. ANTIVERT [Concomitant]
     Active Substance: MECLIZINE HYDROCHLORIDE
  23. PREVACID [Concomitant]
     Active Substance: LANSOPRAZOLE
  24. PROAIR HFA 108 [Concomitant]
  25. ABILIFY [Concomitant]
     Active Substance: ARIPIPRAZOLE
  26. OMEPRAZOLE. [Concomitant]
     Active Substance: OMEPRAZOLE

REACTIONS (1)
  - Diarrhoea [Unknown]

NARRATIVE: CASE EVENT DATE: 2019
